FAERS Safety Report 17079016 (Version 1)
Quarter: 2019Q4

REPORT INFORMATION
  Report Type: Spontaneous
  Country: TW (occurrence: TW)
  Receive Date: 20191127
  Receipt Date: 20191127
  Transmission Date: 20200122
  Serious: Yes (Death, Other)
  Sender: FDA-Public Use
  Company Number: TW-ROCHE-2474306

PATIENT
  Age: 25 Year
  Sex: Female

DRUGS (12)
  1. OPDIVO [Suspect]
     Active Substance: NIVOLUMAB
     Indication: METASTATIC GASTRIC CANCER
     Route: 065
  2. LEUCOVORIN [FOLINIC ACID] [Suspect]
     Active Substance: LEUCOVORIN
     Route: 065
     Dates: start: 20180629, end: 201810
  3. HERCEPTIN [Suspect]
     Active Substance: TRASTUZUMAB
     Indication: METASTATIC GASTRIC CANCER
     Dosage: 29-JUN-2018
     Route: 065
     Dates: start: 20180112, end: 20180521
  4. 5-FLUOROURACIL [FLUOROURACIL] [Suspect]
     Active Substance: FLUOROURACIL
     Indication: METASTATIC GASTRIC CANCER
     Route: 065
  5. OXALIPLATIN. [Suspect]
     Active Substance: OXALIPLATIN
     Indication: METASTATIC GASTRIC CANCER
     Route: 065
     Dates: start: 20180629, end: 201810
  6. LEUCOVORIN [FOLINIC ACID] [Suspect]
     Active Substance: LEUCOVORIN
     Indication: METASTATIC GASTRIC CANCER
     Route: 065
     Dates: end: 201805
  7. RAMUCIRUMAB [Suspect]
     Active Substance: RAMUCIRUMAB
     Indication: METASTATIC GASTRIC CANCER
     Route: 065
     Dates: start: 20181113
  8. TAXOL [Suspect]
     Active Substance: PACLITAXEL
     Indication: METASTATIC GASTRIC CANCER
     Route: 065
     Dates: start: 20180515, end: 20180521
  9. 5-FLUOROURACIL [FLUOROURACIL] [Suspect]
     Active Substance: FLUOROURACIL
     Route: 065
     Dates: start: 20180629, end: 201810
  10. TAXOL [Suspect]
     Active Substance: PACLITAXEL
     Route: 065
     Dates: start: 20181113
  11. PERJETA [Suspect]
     Active Substance: PERTUZUMAB
     Indication: METASTATIC GASTRIC CANCER
     Route: 065
     Dates: start: 20180202, end: 20180521
  12. CISPLATIN. [Concomitant]
     Active Substance: CISPLATIN
     Indication: METASTATIC GASTRIC CANCER
     Route: 065
     Dates: start: 20180106, end: 201805

REACTIONS (8)
  - Gastrointestinal haemorrhage [Unknown]
  - Neutropenia [Unknown]
  - Thrombosis [Fatal]
  - Rash [Unknown]
  - Vomiting [Unknown]
  - Anaemia [Unknown]
  - Intentional product use issue [Unknown]
  - Ileus [Unknown]

NARRATIVE: CASE EVENT DATE: 201805
